FAERS Safety Report 5220543-0 (Version None)
Quarter: 2007Q1

REPORT INFORMATION
  Report Type: 
  Country: None (occurrence: None)
  Receive Date: 20070126
  Receipt Date: 20070117
  Transmission Date: 20070707
  Serious: Yes (Hospitalization, Other)
  Sender: FDA-Public Use
  Company Number: PHEH2005US10715

PATIENT
  Age: 52 Year
  Sex: Female
  Weight: 99.773 kg

DRUGS (33)
  1. COUMADIN [Concomitant]
     Indication: THROMBOSIS PROPHYLAXIS
     Dosage: 7.5 MG, QD
     Route: 048
     Dates: start: 19840101
  2. ALLOPURINOL SODIUM [Concomitant]
     Indication: GOUT
     Dosage: 100 MG, BID
  3. POTASSIUM ACETATE [Concomitant]
  4. PROTONIX [Concomitant]
     Dosage: 40 MG, QD
  5. ALDACTONE [Concomitant]
     Dosage: 100 MG, BID
  6. ALPRAZOLAM [Concomitant]
     Dosage: UNK, PRN
  7. FERROUS SULFATE TAB [Concomitant]
  8. INTERFERON [Concomitant]
  9. INTERFERON [Concomitant]
     Dates: start: 20020101
  10. LIPITOR [Concomitant]
     Dosage: 10 MG, QD
  11. THALIDOMIDE [Concomitant]
     Dosage: 100 MG, QD
  12. VITAMIN K [Concomitant]
     Dosage: 10 MG Q8H X 3 DOSES
     Route: 058
  13. RANITIDINE [Concomitant]
     Dosage: 150 MG, BID
     Route: 048
  14. NASACORT AQ [Concomitant]
  15. DURAGESIC-100 [Concomitant]
     Dosage: 25 MG, Q72H
  16. EFFEXOR XR [Concomitant]
     Dosage: 75 MG, QD
  17. ZOLOFT [Concomitant]
     Dosage: 50 MG, QD
  18. MS CONTIN [Concomitant]
     Dosage: 15 MG, Q12H
  19. MSIR [Concomitant]
     Dosage: 15 MG, Q12H
  20. MERIDIA [Concomitant]
  21. MICRO-K [Concomitant]
     Dosage: 10 MEQ, BID
  22. AREDIA [Suspect]
     Indication: METASTASES TO BONE
     Dosage: 90 MG, QMO
     Route: 042
     Dates: start: 19990422, end: 20041101
  23. PROLEUKIN [Concomitant]
     Route: 058
     Dates: start: 19990501, end: 20000122
  24. PROLEUKIN [Concomitant]
     Dosage: UNK, UNK
     Dates: start: 20021014, end: 20030401
  25. LASIX [Concomitant]
     Indication: OEDEMA
     Dosage: 20 MG, QD
  26. VASOTEC [Concomitant]
     Dosage: 5 MG, QD
  27. ATARAX [Concomitant]
  28. ZAROXOLYN [Concomitant]
  29. NEURONTIN [Concomitant]
     Indication: NEUROPATHY
     Dosage: 300 MG, QD
  30. XANAX [Concomitant]
     Indication: ANXIETY
     Dosage: 0.25 MG, PRN
  31. LIPITOR [Concomitant]
     Indication: HYPERCHOLESTEROLAEMIA
     Dosage: 10 MG, QD
     Route: 048
  32. ALBUTEROL [Concomitant]
     Indication: ASTHMA
     Dosage: UNK, PRN
  33. ZOFRAN [Concomitant]

REACTIONS (48)
  - ABSCESS [None]
  - ADHESIOLYSIS [None]
  - ALVEOLOPLASTY [None]
  - BACK PAIN [None]
  - BACTERIAL INFECTION [None]
  - BONE DISORDER [None]
  - BONE NEOPLASM MALIGNANT [None]
  - CARDIAC FAILURE CONGESTIVE [None]
  - DEPRESSED LEVEL OF CONSCIOUSNESS [None]
  - DIVERTICULUM [None]
  - ERYTHEMA [None]
  - FUNGAL INFECTION [None]
  - GASTRIC ULCER [None]
  - GASTROINTESTINAL HAEMORRHAGE [None]
  - GINGIVAL PAIN [None]
  - GINGIVAL ULCERATION [None]
  - HAEMATEMESIS [None]
  - HEADACHE [None]
  - HIATUS HERNIA [None]
  - HYPOAESTHESIA [None]
  - HYPOTENSION [None]
  - IMPAIRED HEALING [None]
  - INFLAMMATION [None]
  - LYMPHADENITIS [None]
  - LYMPHADENOPATHY [None]
  - MALIGNANT NEOPLASM PROGRESSION [None]
  - METASTASES TO OVARY [None]
  - METASTATIC RENAL CELL CARCINOMA [None]
  - MUSCULAR WEAKNESS [None]
  - MUSCULOSKELETAL DISCOMFORT [None]
  - OOPHORECTOMY [None]
  - OSTEOARTHRITIS [None]
  - OSTEONECROSIS [None]
  - PYREXIA [None]
  - RASH [None]
  - RED BLOOD CELL SEDIMENTATION RATE INCREASED [None]
  - SEPSIS [None]
  - SKIN ULCER [None]
  - SUBCUTANEOUS NODULE [None]
  - SUBMANDIBULAR MASS [None]
  - SWELLING [None]
  - TENDERNESS [None]
  - THROMBOPHLEBITIS [None]
  - URINARY INCONTINENCE [None]
  - VENOUS THROMBOSIS [None]
  - VISION BLURRED [None]
  - WOUND DRAINAGE [None]
  - WOUND INFECTION [None]
